FAERS Safety Report 6215586-4 (Version None)
Quarter: 2009Q2

REPORT INFORMATION
  Report Type: 
  Country: None (occurrence: None)
  Receive Date: 20090603
  Receipt Date: 20090603
  Transmission Date: 20091009
  Serious: Yes (Disabling)
  Sender: FDA-Public Use
  Company Number: None

PATIENT
  Age: 53 Year
  Sex: Female
  Weight: 81.8 kg

DRUGS (2)
  1. SIMVASTATIN [Suspect]
     Indication: BLOOD CHOLESTEROL INCREASED
     Dosage: 20MG, 1 TAB, ORALLY 1XDAY, @ BEDTIME
     Route: 048
     Dates: start: 20080301
  2. SIMVASTATIN [Suspect]
     Dosage: 20MG,1 TAB, ORALLY, 1XDAY, @BEDTIME
     Route: 048
     Dates: start: 20090401

REACTIONS (10)
  - ACTIVITIES OF DAILY LIVING IMPAIRED [None]
  - ARTHRALGIA [None]
  - DEPRESSION [None]
  - ERYTHEMA [None]
  - HYPERSOMNIA [None]
  - IMPAIRED WORK ABILITY [None]
  - MUSCLE RUPTURE [None]
  - MUSCULAR WEAKNESS [None]
  - SOMNOLENCE [None]
  - STRESS [None]
